FAERS Safety Report 9874352 (Version 2)
Quarter: 2014Q1

REPORT INFORMATION
  Report Type: Other
  Country: US (occurrence: US)
  Receive Date: 20140206
  Receipt Date: 20140206
  Transmission Date: 20141002
  Serious: No
  Sender: FDA-Public Use
  Company Number: US-ACORDA-ACO_33336_2012

PATIENT
  Age: 60 Year
  Sex: Female

DRUGS (2)
  1. AMPYRA [Suspect]
     Indication: GAIT DISTURBANCE
     Dosage: 10 MG, QD
     Dates: start: 2012, end: 2012
  2. AMPYRA [Suspect]
     Dosage: 10 MG, QD
     Route: 065
     Dates: start: 201212

REACTIONS (3)
  - Hypoaesthesia [Recovered/Resolved]
  - Sensation of heaviness [Recovered/Resolved]
  - Inappropriate schedule of drug administration [Unknown]
